FAERS Safety Report 5495582-5 (Version None)
Quarter: 2007Q4

REPORT INFORMATION
  Report Type: 
  Country: None (occurrence: None)
  Receive Date: 20071025
  Receipt Date: 20071015
  Transmission Date: 20080405
  Serious: Yes (Other)
  Sender: FDA-Public Use
  Company Number: PHBS2007FI17572

PATIENT
  Sex: Male

DRUGS (2)
  1. ZOLEDRONIC ACID [Suspect]
     Indication: MULTIPLE MYELOMA
  2. PAMIDRONATE DISODIUM [Suspect]
     Indication: MULTIPLE MYELOMA

REACTIONS (3)
  - OSTEOLYSIS [None]
  - OSTEONECROSIS [None]
  - TOOTH EXTRACTION [None]
